FAERS Safety Report 7441862-3 (Version None)
Quarter: 2011Q2

REPORT INFORMATION
  Report Type: 
  Country: None (occurrence: None)
  Receive Date: 20110428
  Receipt Date: 20110418
  Transmission Date: 20111010
  Serious: Yes (Hospitalization)
  Sender: FDA-Public Use
  Company Number: US-ELI_LILLY_AND_COMPANY-US201103005697

PATIENT
  Age: 24 Year
  Sex: Female
  Weight: 63.492 kg

DRUGS (2)
  1. CYMBALTA [Suspect]
     Indication: MAJOR DEPRESSION
  2. LEXAPRO [Concomitant]

REACTIONS (1)
  - BIPOLAR DISORDER [None]
